FAERS Safety Report 8504553-3 (Version None)
Quarter: 2012Q3

REPORT INFORMATION
  Report Type: 
  Country: None (occurrence: None)
  Receive Date: 20120711
  Receipt Date: 20120626
  Transmission Date: 20120928
  Serious: Yes (Hospitalization)
  Sender: FDA-Public Use
  Company Number: CH-ROCHE-1082216

PATIENT
  Age: 67 Year
  Sex: Female

DRUGS (10)
  1. PREDNISONE [Interacting]
     Indication: PSORIATIC ARTHROPATHY
     Dosage: DOSE NOT CHANGED
     Route: 048
  2. FRAGMIN [Interacting]
     Indication: PROPHYLAXIS
     Route: 058
     Dates: start: 20120301, end: 20120404
  3. ROCEPHIN [Interacting]
     Indication: PNEUMONIA BACTERIAL
     Dosage: DRUG WITHDRAWN
     Route: 042
     Dates: start: 20120323, end: 20120405
  4. ESCITALOPRAM [Interacting]
     Indication: PRODUCT USED FOR UNKNOWN INDICATION
     Dosage: DOSE NOT CHANGED
     Route: 048
  5. RAMIPRIL [Concomitant]
     Route: 048
  6. METHOTREXATE [Suspect]
     Indication: PSORIATIC ARTHROPATHY
     Dosage: DRUG WITHDRAWN
     Route: 048
     Dates: start: 20050801, end: 20120404
  7. CLARITHROMYCIN [Interacting]
     Indication: PNEUMONIA BACTERIAL
     Dosage: REPORTED AS 'KALCID'
     Route: 048
     Dates: start: 20120323, end: 20120405
  8. IBRUPROFEN [Interacting]
     Indication: BACK DISORDER
     Dosage: DRUG WITHDRAWN
     Route: 048
     Dates: start: 20120301, end: 20120404
  9. CALCIMAGON-D3 [Concomitant]
     Route: 048
  10. PANTOZOL (SWITZERLAND) [Concomitant]
     Route: 048

REACTIONS (3)
  - LOWER GASTROINTESTINAL HAEMORRHAGE [None]
  - HAEMORRHAGIC ANAEMIA [None]
  - ENTEROCOLITIS HAEMORRHAGIC [None]
